FAERS Safety Report 21240890 (Version 1)
Quarter: 2022Q3

REPORT INFORMATION
  Report Type: Spontaneous
  Country: CA (occurrence: CA)
  Receive Date: 20220823
  Receipt Date: 20220823
  Transmission Date: 20221027
  Serious: Yes (Hospitalization)
  Sender: FDA-Public Use
  Company Number: CA-SUN PHARMACEUTICAL INDUSTRIES LTD-2022R1-349524

PATIENT
  Age: 24 Year
  Sex: Female

DRUGS (4)
  1. ASPIRIN [Suspect]
     Active Substance: ASPIRIN
     Indication: Pre-eclampsia
     Dosage: UNK,LOW DOSE
     Route: 065
  2. ENALAPRIL [Suspect]
     Active Substance: ENALAPRIL
     Indication: Product used for unknown indication
     Dosage: UNK
     Route: 065
  3. CYSTEAMINE [Suspect]
     Active Substance: CYSTEAMINE
     Indication: Product used for unknown indication
     Dosage: 675 MILLIGRAM, BID
     Route: 065
  4. CYSTEAMINE [Suspect]
     Active Substance: CYSTEAMINE
     Dosage: 750 MILLIGRAM, BID
     Route: 065

REACTIONS (3)
  - Premature baby [Unknown]
  - Exposure during pregnancy [Unknown]
  - Exposure via breast milk [Unknown]
